FAERS Safety Report 21321273 (Version 1)
Quarter: 2022Q3

REPORT INFORMATION
  Report Type: Spontaneous
  Country: US (occurrence: None)
  Receive Date: 20220912
  Receipt Date: 20220912
  Transmission Date: 20221027
  Serious: No
  Sender: FDA-Public Use
  Company Number: US-Encube-000206

PATIENT
  Age: 73 Year
  Sex: Female

DRUGS (3)
  1. PERMETHRIN [Suspect]
     Active Substance: PERMETHRIN
     Indication: Arthropod bite
  2. ENTRESTO [Concomitant]
     Active Substance: SACUBITRIL\VALSARTAN
     Indication: Cardiac disorder
  3. CARVEDILOL [Concomitant]
     Active Substance: CARVEDILOL
     Indication: Cardiac disorder

REACTIONS (3)
  - Expired product administered [Unknown]
  - Off label use [Unknown]
  - Rash erythematous [Not Recovered/Not Resolved]
